FAERS Safety Report 7564547-1 (Version None)
Quarter: 2011Q2

REPORT INFORMATION
  Report Type: 
  Country: None (occurrence: None)
  Receive Date: 20110622
  Receipt Date: 20100519
  Transmission Date: 20111010
  Serious: Yes (Death)
  Sender: FDA-Public Use
  Company Number: US-MYLANLABS-2010S1009052

PATIENT
  Age: 77 Year
  Sex: Female

DRUGS (3)
  1. ATIVAN [Concomitant]
  2. CLOZAPINE [Suspect]
     Dates: start: 20100127
  3. CLOZAPINE [Suspect]
     Dates: start: 20100127

REACTIONS (1)
  - DEATH [None]
